FAERS Safety Report 20135042 (Version 1)
Quarter: 2021Q4

REPORT INFORMATION
  Report Type: Spontaneous
  Country: US (occurrence: None)
  Receive Date: 20211130
  Receipt Date: 20211130
  Transmission Date: 20220303
  Serious: No
  Sender: FDA-Public Use
  Company Number: None

PATIENT
  Age: 71 Year
  Sex: Female
  Weight: 63 kg

DRUGS (2)
  1. METFORMIN [Suspect]
     Active Substance: METFORMIN HYDROCHLORIDE
     Indication: Type 2 diabetes mellitus
     Route: 048
     Dates: start: 20211110, end: 20211129
  2. LISINOPRIL [Concomitant]

REACTIONS (3)
  - Urticaria [None]
  - Pruritus [None]
  - Recalled product administered [None]

NARRATIVE: CASE EVENT DATE: 20211110
